FAERS Safety Report 9456874 (Version 3)
Quarter: 2013Q4

REPORT INFORMATION
  Report Type: Spontaneous
  Country: US (occurrence: US)
  Receive Date: 20130813
  Receipt Date: 20131206
  Transmission Date: 20140711
  Serious: Yes (Hospitalization, Disabling, Other)
  Sender: FDA-Public Use
  Company Number: US-009507513-1205USA04979

PATIENT
  Sex: Female

DRUGS (5)
  1. FOSAMAX [Suspect]
     Indication: OSTEOPOROSIS
     Dosage: 70 MG, QW
     Route: 048
     Dates: start: 20020802
  2. FOSAMAX PLUS D [Suspect]
     Indication: OSTEOPOROSIS
     Dosage: 70-2800
     Route: 048
     Dates: start: 20020802, end: 20071224
  3. FOSAMAX [Suspect]
     Route: 048
  4. ALENDRONATE SODIUM [Suspect]
     Dosage: 70 MG, UNK
     Route: 048
  5. CALCIUM (UNSPECIFIED) (+) VITAMIN D (UNSPECIFIED) [Concomitant]
     Indication: OSTEOPOROSIS

REACTIONS (17)
  - Intramedullary rod insertion [Unknown]
  - Colitis [Unknown]
  - Gastrointestinal haemorrhage [Unknown]
  - Femur fracture [Unknown]
  - Anaemia postoperative [Unknown]
  - Hypertension [Unknown]
  - Hypercholesterolaemia [Unknown]
  - Chronic obstructive pulmonary disease [Not Recovered/Not Resolved]
  - Depression [Unknown]
  - Coronary artery disease [Unknown]
  - Osteoarthritis [Unknown]
  - Scoliosis [Unknown]
  - Joint effusion [Unknown]
  - Osteopenia [Unknown]
  - Constipation [Recovered/Resolved]
  - Gastrooesophageal reflux disease [Unknown]
  - Oedema peripheral [Unknown]
